FAERS Safety Report 7593404-X (Version None)
Quarter: 2011Q3

REPORT INFORMATION
  Report Type: 
  Country: None (occurrence: None)
  Receive Date: 20110706
  Receipt Date: 20110630
  Transmission Date: 20111222
  Serious: Yes (Hospitalization, Other)
  Sender: FDA-Public Use
  Company Number: US-MERCK-1103USA02687

PATIENT
  Age: 66 Year
  Sex: Female

DRUGS (9)
  1. FOSAMAX [Suspect]
     Route: 048
  2. VITAMIN D (UNSPECIFIED) [Concomitant]
     Route: 065
  3. VITAMIN E [Concomitant]
     Route: 065
  4. FOSAMAX [Suspect]
     Route: 048
  5. FOSAMAX PLUS D [Suspect]
     Indication: PROPHYLAXIS
     Route: 048
  6. FOSAMAX [Suspect]
     Indication: PROPHYLAXIS
     Route: 048
     Dates: start: 20000101, end: 20100201
  7. CALCIUM (UNSPECIFIED) [Concomitant]
     Route: 065
     Dates: start: 20060101
  8. CORTICOSTEROIDS (UNSPECIFIED) [Concomitant]
     Route: 065
  9. FOSAMAX [Suspect]
     Indication: OSTEOPOROSIS
     Route: 048
     Dates: start: 20000101, end: 20100201

REACTIONS (14)
  - FALL [None]
  - CHEST PAIN [None]
  - BREAST CANCER [None]
  - ARTHRITIS [None]
  - DIABETES MELLITUS [None]
  - HYPERTENSION [None]
  - LUMBAR SPINAL STENOSIS [None]
  - SPINAL OSTEOARTHRITIS [None]
  - CAROTID BRUIT [None]
  - SWELLING [None]
  - BACK PAIN [None]
  - FEMUR FRACTURE [None]
  - BLOOD CHOLESTEROL INCREASED [None]
  - JOINT INJURY [None]
